FAERS Safety Report 23883943 (Version 1)
Quarter: 2024Q2

REPORT INFORMATION
  Report Type: Spontaneous
  Country: US (occurrence: None)
  Receive Date: 20240521
  Receipt Date: 20240521
  Transmission Date: 20240716
  Serious: Yes (Hospitalization, Other)
  Sender: FDA-Public Use
  Company Number: None

PATIENT
  Age: 76 Year
  Sex: Female
  Weight: 44.55 kg

DRUGS (1)
  1. CARVYKTI [Suspect]
     Active Substance: CILTACABTAGENE AUTOLEUCEL
     Indication: Plasma cell myeloma
     Dosage: SINGLE INFUSION INTRAVENOUS DRIP?
     Route: 041
     Dates: start: 20221219, end: 20221219

REACTIONS (9)
  - Lymphocyte adoptive therapy [None]
  - Cytomegalovirus infection reactivation [None]
  - Diarrhoea [None]
  - Pneumonia cytomegaloviral [None]
  - Gastroenteritis Escherichia coli [None]
  - Clostridium difficile colitis [None]
  - Weight decreased [None]
  - Myelodysplastic syndrome [None]
  - Plasma cell myeloma recurrent [None]

NARRATIVE: CASE EVENT DATE: 20230503
